FAERS Safety Report 20407373 (Version 1)
Quarter: 2022Q1

REPORT INFORMATION
  Report Type: Other
  Country: None (occurrence: US)
  Receive Date: 20220131
  Receipt Date: 20220131
  Transmission Date: 20220423
  Serious: Yes (Other)
  Sender: FDA-Public Use
  Company Number: US-Breckenridge Pharmaceutical, Inc.-2124473

PATIENT
  Age: 55 Year
  Sex: Female

DRUGS (5)
  1. PENICILLAMINE [Suspect]
     Active Substance: PENICILLAMINE
     Indication: Cystinuria
     Route: 048
  2. TIOPRONIN [Concomitant]
     Active Substance: TIOPRONIN
  3. CAPTOPRIL [Concomitant]
     Active Substance: CAPTOPRIL
  4. TRIAMCINOLONE [Concomitant]
     Active Substance: TRIAMCINOLONE
  5. DESONIDE [Concomitant]
     Active Substance: DESONIDE

REACTIONS (2)
  - Pseudoxanthoma elasticum [Recovering/Resolving]
  - Elastosis perforans [Recovering/Resolving]
